FAERS Safety Report 21210532 (Version 1)
Quarter: 2022Q3

REPORT INFORMATION
  Report Type: Spontaneous
  Country: US (occurrence: None)
  Receive Date: 20220815
  Receipt Date: 20220815
  Transmission Date: 20221026
  Serious: Yes (Other)
  Sender: FDA-Public Use
  Company Number: US-SUPERNUS Pharmaceuticals, Inc.-SUP202208-002381

PATIENT
  Age: 16 Year
  Sex: Female

DRUGS (24)
  1. OXCARBAZEPINE [Suspect]
     Active Substance: OXCARBAZEPINE
     Indication: Affective disorder
  2. OXCARBAZEPINE [Suspect]
     Active Substance: OXCARBAZEPINE
     Indication: Anxiety
  3. OXCARBAZEPINE [Suspect]
     Active Substance: OXCARBAZEPINE
     Indication: Depression
  4. OXCARBAZEPINE [Suspect]
     Active Substance: OXCARBAZEPINE
  5. OXCARBAZEPINE [Suspect]
     Active Substance: OXCARBAZEPINE
  6. BUSPIRONE [Concomitant]
     Active Substance: BUSPIRONE HYDROCHLORIDE
     Indication: Anxiety
  7. BUSPIRONE [Concomitant]
     Active Substance: BUSPIRONE HYDROCHLORIDE
     Indication: Depression
  8. MIRTAZAPINE [Concomitant]
     Active Substance: MIRTAZAPINE
     Indication: Anxiety
  9. MIRTAZAPINE [Concomitant]
     Active Substance: MIRTAZAPINE
     Indication: Depression
  10. ONDANSETRON [Concomitant]
     Active Substance: ONDANSETRON
     Indication: Nausea
     Dosage: NOT PROVIDED
  11. CALCIUM CARBONATE [Concomitant]
     Active Substance: CALCIUM CARBONATE
     Indication: Nausea
     Dosage: NOT PROVIDED
  12. Potassium phosphorous [Concomitant]
     Dosage: NOT PROVIDED
  13. AMOXICILLIN [Concomitant]
     Active Substance: AMOXICILLIN
     Indication: Helicobacter infection
  14. PANTOPRAZOLE [Concomitant]
     Active Substance: PANTOPRAZOLE
     Indication: Helicobacter infection
  15. METRONIDAZOLE [Concomitant]
     Active Substance: METRONIDAZOLE
     Indication: Helicobacter infection
  16. GABAPENTIN [Concomitant]
     Active Substance: GABAPENTIN
     Indication: Anxiety
  17. GABAPENTIN [Concomitant]
     Active Substance: GABAPENTIN
     Indication: Depression
  18. YAZ [Concomitant]
     Active Substance: DROSPIRENONE\ETHINYL ESTRADIOL
     Indication: Menstruation irregular
     Dosage: (3 MG +0.02 MG
  19. VITAMIN D [Concomitant]
     Active Substance: VITAMIN D NOS
  20. LORATADINE [Concomitant]
     Active Substance: LORATADINE
     Indication: Hypersensitivity
  21. BACLOFEN [Concomitant]
     Active Substance: BACLOFEN
     Indication: Muscle spasticity
  22. BACLOFEN [Concomitant]
     Active Substance: BACLOFEN
  23. BACLOFEN [Concomitant]
     Active Substance: BACLOFEN
  24. YASMIN [Concomitant]
     Active Substance: DROSPIRENONE\ETHINYL ESTRADIOL
     Indication: Menstruation irregular
     Dosage: (3 MG +0.02 MG

REACTIONS (2)
  - Hypogammaglobulinaemia [Recovering/Resolving]
  - Product use in unapproved indication [Unknown]
